FAERS Safety Report 16275279 (Version 1)
Quarter: 2019Q2

REPORT INFORMATION
  Report Type: Spontaneous
  Country: US (occurrence: US)
  Receive Date: 20190506
  Receipt Date: 20190506
  Transmission Date: 20190711
  Serious: No
  Sender: FDA-Public Use
  Company Number: US-ASTRAZENECA-2019SE55520

PATIENT
  Age: 40 Year
  Sex: Male
  Weight: 93.4 kg

DRUGS (1)
  1. BYDUREON BCISE [Suspect]
     Active Substance: EXENATIDE
     Indication: INSULIN-REQUIRING TYPE 2 DIABETES MELLITUS
     Route: 058
     Dates: start: 2018

REACTIONS (3)
  - Blood glucose abnormal [Unknown]
  - Incorrect dose administered [Unknown]
  - Device failure [Unknown]

NARRATIVE: CASE EVENT DATE: 2018
